FAERS Safety Report 6611997-3 (Version None)
Quarter: 2010Q1

REPORT INFORMATION
  Report Type: 
  Country: None (occurrence: None)
  Receive Date: 20100302
  Receipt Date: 20100302
  Transmission Date: 20100710
  Serious: Yes (Hospitalization)
  Sender: FDA-Public Use
  Company Number: None

PATIENT
  Age: 69 Year
  Sex: Male

DRUGS (1)
  1. IOPAMIDOL [Suspect]
     Indication: PAIN
     Dosage: 410 MG ONCE IV
     Route: 042
     Dates: start: 20100211, end: 20100211

REACTIONS (5)
  - ANGIOEDEMA [None]
  - CONTRAST MEDIA REACTION [None]
  - FEELING ABNORMAL [None]
  - SPEECH DISORDER [None]
  - VOMITING [None]
